FAERS Safety Report 11894825 (Version 1)
Quarter: 2016Q1

REPORT INFORMATION
  Report Type: Spontaneous
  Country: US (occurrence: US)
  Receive Date: 20160107
  Receipt Date: 20160107
  Transmission Date: 20160526
  Serious: No
  Sender: FDA-Public Use
  Company Number: US-ASTRAZENECA-2015SF31142

PATIENT
  Age: 788 Month
  Sex: Female
  Weight: 99.8 kg

DRUGS (2)
  1. JANUVIA [Concomitant]
     Active Substance: SITAGLIPTIN PHOSPHATE
  2. BYDUREON [Suspect]
     Active Substance: EXENATIDE
     Indication: TYPE 2 DIABETES MELLITUS
     Route: 058
     Dates: start: 20151214

REACTIONS (7)
  - Nausea [Unknown]
  - Injection site nodule [Unknown]
  - Malaise [Unknown]
  - Asthenia [Unknown]
  - Injection site erythema [Unknown]
  - Dyspepsia [Unknown]
  - Drug dose omission [Unknown]

NARRATIVE: CASE EVENT DATE: 201512
